FAERS Safety Report 18838988 (Version 1)
Quarter: 2021Q1

REPORT INFORMATION
  Report Type: Spontaneous
  Country: CN (occurrence: CN)
  Receive Date: 20210203
  Receipt Date: 20210203
  Transmission Date: 20210419
  Serious: Yes (Hospitalization, Other)
  Sender: FDA-Public Use
  Company Number: CN-PFIZER INC-2021077367

PATIENT
  Age: 67 Year
  Sex: Male
  Weight: 84.3 kg

DRUGS (3)
  1. CELEBREX [Suspect]
     Active Substance: CELECOXIB
     Indication: ANALGESIC THERAPY
     Dosage: 0.2 G, 2X/DAY
     Route: 048
     Dates: start: 20201124, end: 20201207
  2. CELEBREX [Suspect]
     Active Substance: CELECOXIB
     Indication: INTERVERTEBRAL DISC PROTRUSION
  3. DIOSMIN [Concomitant]
     Active Substance: DIOSMIN
     Indication: INTERVERTEBRAL DISC PROTRUSION

REACTIONS (6)
  - Purpura [Unknown]
  - Condition aggravated [Unknown]
  - Drug eruption [Recovering/Resolving]
  - Intervertebral disc protrusion [Unknown]
  - Arthralgia [Unknown]
  - Skin exfoliation [Unknown]

NARRATIVE: CASE EVENT DATE: 20201206
